FAERS Safety Report 11713392 (Version 1)
Quarter: 2015Q4

REPORT INFORMATION
  Report Type: Spontaneous
  Country: MY (occurrence: MY)
  Receive Date: 20151109
  Receipt Date: 20151109
  Transmission Date: 20160304
  Serious: Yes (Other)
  Sender: FDA-Public Use
  Company Number: MY-ACCORD-035142

PATIENT
  Age: 17 Year
  Sex: Female

DRUGS (8)
  1. OLANZAPINE. [Suspect]
     Active Substance: OLANZAPINE
     Indication: OBSESSIVE-COMPULSIVE DISORDER
  2. ARIPIPRAZOLE. [Suspect]
     Active Substance: ARIPIPRAZOLE
     Indication: OBSESSIVE-COMPULSIVE DISORDER
     Dosage: STARTED AT 5MG/DAY, THEN GRADUALLY INCREASED IN TWO WEEKS UP TO 30 MG DAILY.
  3. RISPERIDONE. [Suspect]
     Active Substance: RISPERIDONE
     Indication: OBSESSIVE-COMPULSIVE DISORDER
  4. QUETIAPINE [Suspect]
     Active Substance: QUETIAPINE
     Indication: OBSESSIVE-COMPULSIVE DISORDER
     Dosage: INITIALLY STARTED AT THE DOSE 50 MG, THEN INCREASED TO 100 MG, AND SUBSEQUENTLY INCREASED TO 200 MG.
  5. HALOPERIDOL. [Suspect]
     Active Substance: HALOPERIDOL
     Indication: OBSESSIVE-COMPULSIVE DISORDER
  6. LEXAPRO [Suspect]
     Active Substance: ESCITALOPRAM OXALATE
     Indication: OBSESSIVE-COMPULSIVE DISORDER
     Dosage: DOSE: 10 MG NOCTE?DOSE WAS INCREASED TO 30 MG DAILY OVER THE PERIOD OF TWO MONTHS
  7. CLOZAPINE. [Suspect]
     Active Substance: CLOZAPINE
     Indication: OBSESSIVE-COMPULSIVE DISORDER
     Dosage: STARTED AT 12.5MG DAILY AND GRADUALLY INCREASED UP TO 300 MG DAILY OVER THE PERIOD OF 2 MONTHS
  8. PALIPERIDONE/PALIPERIDONE PALMITATE [Suspect]
     Active Substance: PALIPERIDONE
     Indication: OBSESSIVE-COMPULSIVE DISORDER
     Dosage: GRADUALLY INCREASED TO 12 MG DAILY OVER THE PERIOD OF 4 MONTHS

REACTIONS (18)
  - Tongue disorder [None]
  - Delusion [None]
  - Obsessive-compulsive disorder [None]
  - Delusion of reference [None]
  - Abnormal behaviour [None]
  - Fear [None]
  - Musculoskeletal stiffness [Unknown]
  - Amenorrhoea [Unknown]
  - Thinking abnormal [None]
  - Activities of daily living impaired [None]
  - Schizophrenia [None]
  - Condition aggravated [Recovering/Resolving]
  - Treatment failure [Unknown]
  - Psychotic disorder [None]
  - Extrapyramidal disorder [Unknown]
  - Tachycardia [None]
  - Salivary hypersecretion [None]
  - Weight increased [None]
